FAERS Safety Report 6494303-7 (Version None)
Quarter: 2009Q4

REPORT INFORMATION
  Report Type: 
  Country: None (occurrence: None)
  Receive Date: 20091214
  Receipt Date: 20091201
  Transmission Date: 20100525
  Serious: Yes (Other)
  Sender: FDA-Public Use
  Company Number: FR-ELI_LILLY_AND_COMPANY-FR200909000206

PATIENT
  Age: 45 Year
  Sex: Male
  Weight: 88 kg

DRUGS (7)
  1. CYMBALTA [Suspect]
     Indication: DEPRESSION
     Dosage: 60 MG, UNKNOWN
     Route: 048
     Dates: start: 20090714, end: 20090821
  2. DEPAKOTE [Concomitant]
     Indication: DYSTHYMIC DISORDER
     Dosage: 500 MG, 2/D
     Route: 048
     Dates: start: 20090511, end: 20090821
  3. MEPRONIZINE [Concomitant]
     Dosage: UNK, UNKNOWN
  4. ATHYMIL [Concomitant]
     Dosage: 30 MG, DAILY (1/D)
     Route: 065
  5. TERCIAN [Concomitant]
     Indication: ANXIETY
     Dosage: 50 MG, DAILY (1/D)
     Route: 048
     Dates: start: 20090511
  6. SERESTA [Concomitant]
     Indication: ANXIETY
     Dosage: 150 MG, DAILY (1/D)
     Route: 048
     Dates: start: 20090511
  7. ZOLOFT [Concomitant]
     Indication: DEPRESSION
     Dosage: 50 MG, DAILY (1/D)
     Route: 048
     Dates: start: 20090511, end: 20090713

REACTIONS (5)
  - ALANINE AMINOTRANSFERASE INCREASED [None]
  - ASPARTATE AMINOTRANSFERASE INCREASED [None]
  - GAMMA-GLUTAMYLTRANSFERASE INCREASED [None]
  - HEPATIC STEATOSIS [None]
  - PLATELET COUNT DECREASED [None]
